FAERS Safety Report 14003029 (Version 4)
Quarter: 2017Q4

REPORT INFORMATION
  Report Type: Report from Study
  Country: CN (occurrence: CN)
  Receive Date: 20170922
  Receipt Date: 20171225
  Transmission Date: 20180321
  Serious: Yes (Death)
  Sender: FDA-Public Use
  Company Number: CN-ROCHE-1993994

PATIENT
  Age: 57 Year
  Sex: Male
  Weight: 52.6 kg

DRUGS (7)
  1. GLUTAMINE [Concomitant]
     Active Substance: GLUTAMINE
     Dosage: COMPOUND GRANULES
     Route: 065
     Dates: start: 20170915
  2. CIMETIDINE [Concomitant]
     Active Substance: CIMETIDINE
     Route: 065
     Dates: start: 20170915, end: 20170915
  3. RABEPRAZOLE SODIUM. [Concomitant]
     Active Substance: RABEPRAZOLE SODIUM
     Dosage: ENTERIC COATED CAPSULES
     Route: 065
     Dates: start: 20170915
  4. CODEINE PHOSPHATE [Concomitant]
     Active Substance: CODEINE PHOSPHATE
     Indication: COUGH
     Dosage: COMPOUND CODEINE PHOSPHATE
     Route: 048
     Dates: start: 20170330
  5. CODEINE [Concomitant]
     Active Substance: CODEINE
     Indication: COUGH
     Route: 065
     Dates: start: 20170914
  6. ATEZOLIZUMAB. [Suspect]
     Active Substance: ATEZOLIZUMAB
     Indication: NON-SMALL CELL LUNG CANCER
     Dosage: MOST RECENT DOSE ON 24/AUG/2017
     Route: 042
     Dates: start: 20170329
  7. CODEINE [Concomitant]
     Active Substance: CODEINE
     Route: 065
     Dates: start: 20170824, end: 20170830

REACTIONS (1)
  - Respiratory failure [Fatal]

NARRATIVE: CASE EVENT DATE: 20170914
